FAERS Safety Report 8854054 (Version 1)
Quarter: 2012Q4

REPORT INFORMATION
  Report Type: Spontaneous
  Country: US (occurrence: None)
  Receive Date: 20121019
  Receipt Date: 20121019
  Transmission Date: 20130627
  Serious: Yes (Other)
  Sender: FDA-Public Use
  Company Number: None

PATIENT
  Sex: Male
  Weight: 78.93 kg

DRUGS (2)
  1. INDOMETHACIN [Suspect]
     Indication: ARTHRITIS
  2. INDOMETHACIN [Suspect]
     Indication: ARTHRITIS

REACTIONS (5)
  - Dyspnoea [None]
  - Chest pain [None]
  - Diarrhoea [None]
  - Abdominal pain upper [None]
  - Vision blurred [None]
